FAERS Safety Report 16347317 (Version 7)
Quarter: 2021Q2

REPORT INFORMATION
  Report Type: Other
  Country: CA (occurrence: CA)
  Receive Date: 20190523
  Receipt Date: 20210628
  Transmission Date: 20210716
  Serious: Yes (Other)
  Sender: FDA-Public Use
  Company Number: CA-ROCHE-2320708

PATIENT
  Age: 60 Year
  Sex: Female

DRUGS (2)
  1. SYNTHROID [Concomitant]
     Active Substance: LEVOTHYROXINE SODIUM
     Indication: FLANK PAIN
  2. OCREVUS [Suspect]
     Active Substance: OCRELIZUMAB
     Indication: RELAPSING-REMITTING MULTIPLE SCLEROSIS
     Dosage: NEXT INFUSIONS WERE RECEIVED ON  17/MAY/2019, 14/JUN/2021
     Route: 042
     Dates: start: 20190503

REACTIONS (16)
  - Depression [Recovered/Resolved]
  - Asthenia [Recovered/Resolved]
  - Stress [Recovered/Resolved]
  - Infusion related reaction [Not Recovered/Not Resolved]
  - Flank pain [Not Recovered/Not Resolved]
  - Hypertension [Not Recovered/Not Resolved]
  - Insomnia [Recovering/Resolving]
  - Burning sensation [Not Recovered/Not Resolved]
  - Thirst [Recovered/Resolved]
  - Apathy [Recovered/Resolved]
  - Neck pain [Recovered/Resolved]
  - Depression [Recovered/Resolved]
  - Eye infection [Unknown]
  - Heart rate increased [Not Recovered/Not Resolved]
  - Photopsia [Not Recovered/Not Resolved]
  - Dry mouth [Recovered/Resolved]

NARRATIVE: CASE EVENT DATE: 20190506
